FAERS Safety Report 12640615 (Version 8)
Quarter: 2017Q2

REPORT INFORMATION
  Report Type: Spontaneous
  Country: JP (occurrence: JP)
  Receive Date: 20160810
  Receipt Date: 20170517
  Transmission Date: 20170830
  Serious: Yes (Death, Hospitalization, Other)
  Sender: FDA-Public Use
  Company Number: JP-PFIZER INC-2016375362

PATIENT
  Age: 84 Year
  Sex: Male
  Weight: 174 kg

DRUGS (6)
  1. SUTENT [Suspect]
     Active Substance: SUNITINIB MALATE
     Indication: METASTATIC RENAL CELL CARCINOMA
     Dosage: 25 MG, CYCLIC (DAILY, TWO-WEEK-ON AND ONE-WEEK-OFF)
     Route: 048
     Dates: start: 20160614, end: 20161103
  2. NIFEDIPINE. [Concomitant]
     Active Substance: NIFEDIPINE
     Dosage: UNK
     Route: 048
     Dates: end: 20161128
  3. WARFARIN [Concomitant]
     Active Substance: WARFARIN
     Indication: ATRIAL FIBRILLATION
     Dosage: 2 MG, 1X/DAY
     Route: 048
     Dates: end: 20160817
  4. ARICEPT [Concomitant]
     Active Substance: DONEPEZIL HYDROCHLORIDE
     Dosage: UNK
     Route: 048
     Dates: start: 20161020, end: 20161128
  5. IMIDAPRIL HYDROCHLORIDE [Concomitant]
     Active Substance: IMIDAPRIL HYDROCHLORIDE
     Dosage: UNK
     Route: 048
     Dates: end: 20161217
  6. WARFARIN [Concomitant]
     Active Substance: WARFARIN
     Dosage: 1 MG, 1X/DAY
     Route: 048
     Dates: start: 20160818, end: 20161223

REACTIONS (9)
  - Malignant pleural effusion [Not Recovered/Not Resolved]
  - Fatigue [Unknown]
  - Pericardial effusion [Fatal]
  - Cognitive disorder [Unknown]
  - Cardiac failure [Fatal]
  - Delirium [Recovered/Resolved]
  - Hypoalbuminaemia [Unknown]
  - Pleural effusion [Unknown]
  - Neoplasm progression [Fatal]

NARRATIVE: CASE EVENT DATE: 20160616
